FAERS Safety Report 8312526-9 (Version None)
Quarter: 2012Q2

REPORT INFORMATION
  Report Type: 
  Country: None (occurrence: None)
  Receive Date: 20120425
  Receipt Date: 20120403
  Transmission Date: 20120825
  Serious: Yes (Hospitalization, Other)
  Sender: FDA-Public Use
  Company Number: PHHY2011DE107290

PATIENT
  Age: 78 Year
  Sex: Male

DRUGS (14)
  1. DEXMETHSONE [Suspect]
     Dosage: 20 MG,
     Dates: start: 20120104, end: 20120201
  2. LENALIDOMIDE [Suspect]
     Dosage: 25 MG, QD
     Route: 048
     Dates: start: 20120222
  3. POTASSIUM CHLORIDE [Concomitant]
     Indication: HYPOKALAEMIA
     Dosage: 600 MG, TID
     Route: 048
     Dates: start: 20110726
  4. MARCUMAR [Concomitant]
     Indication: THROMBOSIS PROPHYLAXIS
     Dosage: 1 DF, PRN
     Route: 048
     Dates: start: 20110510
  5. ALLOPURINOL [Concomitant]
     Indication: PROPHYLAXIS
     Dosage: 300 MG, QD
     Route: 048
     Dates: start: 20110208
  6. ZOMETA [Suspect]
     Indication: BONE LESION
     Dosage: 4 MG, QMO
     Dates: start: 20091201, end: 20120322
  7. DEXMETHSONE [Suspect]
     Indication: MULTIPLE MYELOMA
     Dosage: 20 MG,
     Dates: start: 20090922
  8. LENALIDOMIDE [Suspect]
     Dosage: 25 MG, QD
     Route: 048
     Dates: start: 20120104, end: 20120201
  9. TAZOBACTAM [Concomitant]
  10. METOPROLOL SUCCINATE [Concomitant]
     Indication: HYPERTENSION
     Dosage: 95 MG, QD
     Route: 048
     Dates: start: 20110920
  11. DEXMETHSONE [Suspect]
     Dosage: 20 MG,
     Dates: start: 20120222
  12. LENALIDOMIDE [Suspect]
     Indication: MULTIPLE MYELOMA
     Dosage: 25 MG, QD
     Route: 048
     Dates: start: 20090922
  13. LASIX [Concomitant]
     Indication: PROPHYLAXIS
     Dosage: 40 MG, QD
     Route: 048
     Dates: start: 20090601
  14. SIMVASTATIN [Concomitant]
     Indication: CORONARY ARTERY DISEASE
     Dosage: 30 MG, QD
     Route: 048
     Dates: start: 20100921

REACTIONS (5)
  - OSTEONECROSIS OF JAW [None]
  - SQUAMOUS CELL CARCINOMA [None]
  - SEPSIS [None]
  - PYREXIA [None]
  - ASTHENIA [None]
